FAERS Safety Report 6771584-3 (Version None)
Quarter: 2010Q2

REPORT INFORMATION
  Report Type: 
  Country: None (occurrence: None)
  Receive Date: 20100616
  Receipt Date: 20100602
  Transmission Date: 20101027
  Serious: Yes (Hospitalization)
  Sender: FDA-Public Use
  Company Number: PHHY2010BR35549

PATIENT
  Sex: Female

DRUGS (1)
  1. CODATEN [Suspect]
     Dosage: ONE TABLET (50 MG)
     Route: 048

REACTIONS (4)
  - DIZZINESS [None]
  - HAEMORRHAGE [None]
  - HEADACHE [None]
  - NAUSEA [None]
